FAERS Safety Report 20771474 (Version 2)
Quarter: 2022Q2

REPORT INFORMATION
  Report Type: Report from Study
  Country: US (occurrence: US)
  Receive Date: 20220429
  Receipt Date: 20220530
  Transmission Date: 20220721
  Serious: Yes (Other)
  Sender: FDA-Public Use
  Company Number: US-ABBVIE-22K-163-4251726-00

PATIENT
  Age: 51 Year
  Sex: Female

DRUGS (3)
  1. RINVOQ [Suspect]
     Active Substance: UPADACITINIB
     Indication: Rheumatoid arthritis
     Route: 048
     Dates: start: 20210412, end: 20220125
  2. RINVOQ [Suspect]
     Active Substance: UPADACITINIB
     Route: 048
     Dates: start: 20220209, end: 20220417
  3. RINVOQ [Suspect]
     Active Substance: UPADACITINIB
     Route: 048

REACTIONS (16)
  - Lower limb fracture [Recovering/Resolving]
  - COVID-19 [Recovered/Resolved]
  - Ear pain [Unknown]
  - Dizziness [Unknown]
  - Cystitis [Recovered/Resolved]
  - Pain [Not Recovered/Not Resolved]
  - Hyperhidrosis [Not Recovered/Not Resolved]
  - Kidney infection [Recovered/Resolved]
  - Gingivitis [Unknown]
  - Feeling abnormal [Unknown]
  - Haemorrhage [Unknown]
  - Inflammation [Unknown]
  - Joint lock [Unknown]
  - Arthralgia [Unknown]
  - Joint range of motion decreased [Unknown]
  - Limb injury [Unknown]

NARRATIVE: CASE EVENT DATE: 20210416
